FAERS Safety Report 5209511-2 (Version None)
Quarter: 2007Q1

REPORT INFORMATION
  Report Type: 
  Country: None (occurrence: None)
  Receive Date: 20070116
  Receipt Date: 20070109
  Transmission Date: 20070707
  Serious: Yes (Hospitalization, Other)
  Sender: FDA-Public Use
  Company Number: US-PFIZER INC-2007002831

PATIENT
  Sex: Female
  Weight: 83.9 kg

DRUGS (6)
  1. LIPITOR [Suspect]
     Indication: BLOOD CHOLESTEROL
  2. CALTRATE [Suspect]
     Indication: BONE DISORDER
  3. GENERAL NUTRIENTS/MINERALS/VITAMINS [Suspect]
     Indication: ARTHROPATHY
     Dates: start: 20061001, end: 20061101
  4. ACTONEL [Concomitant]
     Indication: OSTEOPENIA
  5. OMEPRAZOLE [Concomitant]
     Indication: PANCREATITIS
  6. CELEBREX [Concomitant]
     Indication: ARTHROPATHY

REACTIONS (8)
  - GASTROINTESTINAL PAIN [None]
  - HERNIA [None]
  - LOSS OF CONSCIOUSNESS [None]
  - MALAISE [None]
  - PAIN IN EXTREMITY [None]
  - POLLAKIURIA [None]
  - RESTLESS LEGS SYNDROME [None]
  - WEIGHT INCREASED [None]
